FAERS Safety Report 8044257-7 (Version None)
Quarter: 2012Q1

REPORT INFORMATION
  Report Type: 
  Country: None (occurrence: None)
  Receive Date: 20120113
  Receipt Date: 20120106
  Transmission Date: 20120608
  Serious: Yes (Other)
  Sender: FDA-Public Use
  Company Number: US-BAYER-2011-032314

PATIENT
  Age: 25 Year
  Sex: Female
  Weight: 81.633 kg

DRUGS (3)
  1. YAZ [Suspect]
     Indication: CONTRACEPTION
     Dosage: UNK
     Dates: start: 20070101, end: 20100101
  2. VIRAL VACCINES [Concomitant]
     Indication: HUMAN PAPILLOMA VIRUS IMMUNISATION
     Dosage: UNK
     Dates: start: 20090701
  3. NSAID'S [Concomitant]
     Dosage: UNK UNK, PRN

REACTIONS (6)
  - GALLBLADDER DISORDER [None]
  - INJURY [None]
  - EMOTIONAL DISTRESS [None]
  - ANXIETY [None]
  - PAIN [None]
  - CHOLELITHIASIS [None]
